FAERS Safety Report 10149299 (Version 1)
Quarter: 2014Q2

REPORT INFORMATION
  Report Type: Spontaneous
  Country: CA (occurrence: CA)
  Receive Date: 20140502
  Receipt Date: 20140502
  Transmission Date: 20141212
  Serious: Yes (Other)
  Sender: FDA-Public Use
  Company Number: CA-ASTRAZENECA-2014SE28547

PATIENT
  Sex: Female

DRUGS (5)
  1. ANASTROZOLE [Suspect]
     Route: 048
  2. ZOLADEX [Suspect]
     Route: 058
  3. XELODA [Suspect]
     Route: 065
  4. PACLITAXEL [Suspect]
     Route: 042
  5. LETROZOLE [Suspect]
     Route: 048

REACTIONS (2)
  - Breast cancer [Unknown]
  - Malignant neoplasm progression [Unknown]
